FAERS Safety Report 5127418-6 (Version None)
Quarter: 2006Q4

REPORT INFORMATION
  Report Type: 
  Country: None (occurrence: None)
  Receive Date: 20061013
  Receipt Date: 20061013
  Transmission Date: 20070319
  Serious: Yes (Hospitalization)
  Sender: FDA-Public Use
  Company Number: None

PATIENT
  Sex: Female
  Weight: 82.1 kg

DRUGS (7)
  1. MYFORTIC [Suspect]
     Indication: PROPHYLAXIS AGAINST TRANSPLANT REJECTION
     Dosage: 360 MG  PO QID
     Route: 048
     Dates: start: 20060602, end: 20061001
  2. MYFORTIC [Suspect]
     Indication: PROPHYLAXIS AGAINST TRANSPLANT REJECTION
     Dosage: 360MG  PO   TID
     Route: 048
     Dates: start: 20061002
  3. PROGRAF [Concomitant]
  4. PREDNISONE TAB [Concomitant]
  5. CIPRO [Concomitant]
  6. LOMOTIL [Concomitant]
  7. TINCTURE OF OPIUM [Concomitant]

REACTIONS (5)
  - BLOOD CREATININE INCREASED [None]
  - CLOSTRIDIUM DIFFICILE COLITIS [None]
  - DEHYDRATION [None]
  - PATHOGEN RESISTANCE [None]
  - URINARY TRACT INFECTION [None]
